FAERS Safety Report 14655685 (Version 1)
Quarter: 2018Q1

REPORT INFORMATION
  Report Type: Spontaneous
  Country: PT (occurrence: PT)
  Receive Date: 20180319
  Receipt Date: 20180319
  Transmission Date: 20180509
  Serious: Yes (Other)
  Sender: FDA-Public Use
  Company Number: PT-ABBVIE-18S-130-2291257-00

PATIENT
  Age: 31 Year
  Sex: Female
  Weight: 56 kg

DRUGS (2)
  1. SUFENTANIL [Concomitant]
     Active Substance: SUFENTANIL
     Indication: CAESAREAN DELIVERY ON MATERNAL REQUEST
     Route: 065
  2. LEVOBUPIVACAINA KABI [Suspect]
     Active Substance: LEVOBUPIVACAINE
     Indication: CAESAREAN DELIVERY ON MATERNAL REQUEST
     Dosage: 8MG SUBARACNOIDEU
     Route: 050
     Dates: start: 20180305, end: 20180305

REACTIONS (2)
  - Product quality issue [Unknown]
  - Drug ineffective [Not Recovered/Not Resolved]

NARRATIVE: CASE EVENT DATE: 20180305
